FAERS Safety Report 7749016-8 (Version None)
Quarter: 2011Q3

REPORT INFORMATION
  Report Type: 
  Country: None (occurrence: None)
  Receive Date: 20110825
  Receipt Date: 20110629
  Transmission Date: 20111222
  Serious: No
  Sender: FDA-Public Use
  Company Number: 330986

PATIENT
  Age: 60 Year
  Sex: Female

DRUGS (1)
  1. VICTOZA [Suspect]
     Indication: TYPE 2 DIABETES MELLITUS
     Dosage: 1.2 MG, QD, IN EVENING, SUBCUTANEOUS
     Route: 058
     Dates: start: 20100726

REACTIONS (2)
  - INJECTION SITE CYST [None]
  - INJECTION SITE NODULE [None]
